FAERS Safety Report 18371676 (Version 1)
Quarter: 2020Q4

REPORT INFORMATION
  Report Type: Spontaneous
  Country: US (occurrence: US)
  Receive Date: 20201012
  Receipt Date: 20201012
  Transmission Date: 20210114
  Serious: No
  Sender: FDA-Public Use
  Company Number: US-PFIZER INC-2020204175

PATIENT
  Age: 43 Year
  Sex: Male

DRUGS (2)
  1. RAPAMUNE [Suspect]
     Active Substance: SIROLIMUS
     Indication: HEART TRANSPLANT
     Dosage: 2 DF, DAILY (1 MG - 2 TABS ORALLY)
     Route: 048
  2. RAPAMUNE [Suspect]
     Active Substance: SIROLIMUS
     Dosage: 3 DF, DAILY (1 MG - TAKE 3 TABS ORALLY)
     Route: 048

REACTIONS (3)
  - Renal disorder [Unknown]
  - Product use in unapproved indication [Unknown]
  - Off label use [Unknown]
